FAERS Safety Report 5322305-2 (Version None)
Quarter: 2007Q2

REPORT INFORMATION
  Report Type: 
  Country: None (occurrence: None)
  Receive Date: 20070511
  Receipt Date: 20070510
  Transmission Date: 20071010
  Serious: Yes (Hospitalization)
  Sender: FDA-Public Use
  Company Number: B0470101A

PATIENT
  Age: 70 Year
  Sex: Male

DRUGS (9)
  1. CLAMOXYL [Suspect]
     Dosage: 1G TWICE PER DAY
     Route: 048
     Dates: start: 20070310, end: 20070319
  2. ZECLAR [Suspect]
     Dosage: 500MG PER DAY
     Route: 048
     Dates: start: 20070310, end: 20070319
  3. ALDACTONE [Concomitant]
     Indication: ASCITES
     Dosage: 50MG PER DAY
     Route: 048
     Dates: start: 20070306
  4. AVLOCARDYL [Concomitant]
     Dosage: 160MG PER DAY
     Route: 048
     Dates: start: 20070308
  5. LASIX [Concomitant]
     Indication: ASCITES
     Dosage: 40MG PER DAY
     Route: 048
  6. INIPOMP [Concomitant]
     Dosage: 40MG PER DAY
     Route: 048
     Dates: start: 20070306
  7. CORDARONE [Concomitant]
     Dosage: 200MG PER DAY
  8. NOVONORM [Concomitant]
  9. LEVOTHYROXINE SODIUM [Concomitant]
     Dosage: 175MCG PER DAY

REACTIONS (4)
  - ALANINE AMINOTRANSFERASE INCREASED [None]
  - ASPARTATE AMINOTRANSFERASE INCREASED [None]
  - BLOOD ALKALINE PHOSPHATASE INCREASED [None]
  - GAMMA-GLUTAMYLTRANSFERASE INCREASED [None]
